FAERS Safety Report 6022391-0 (Version None)
Quarter: 2008Q4

REPORT INFORMATION
  Report Type: 
  Country: None (occurrence: None)
  Receive Date: 20081223
  Receipt Date: 20081223
  Transmission Date: 20090506
  Serious: No
  Sender: FDA-Public Use
  Company Number: None

PATIENT
  Age: 64 Year
  Sex: Male
  Weight: 74.8435 kg

DRUGS (2)
  1. FLOMAX [Suspect]
     Indication: PROSTATOMEGALY
     Dosage: 0.4 1 PER DAY PO
     Route: 048
     Dates: start: 20081008, end: 20081219
  2. FINASTERIDE [Suspect]
     Dosage: 5 MG 1 PER DAY PO
     Route: 048
     Dates: start: 20081008, end: 20081219

REACTIONS (3)
  - ERECTILE DYSFUNCTION [None]
  - LOSS OF LIBIDO [None]
  - SEMEN VOLUME DECREASED [None]
